FAERS Safety Report 5635430-3 (Version None)
Quarter: 2008Q1

REPORT INFORMATION
  Report Type: 
  Country: None (occurrence: None)
  Receive Date: 20080222
  Receipt Date: 20080211
  Transmission Date: 20080703
  Serious: Yes (Hospitalization)
  Sender: FDA-Public Use
  Company Number: FR-PFIZER INC-2008013602

PATIENT
  Sex: Female
  Weight: 52 kg

DRUGS (5)
  1. MARAVIROC [Suspect]
     Indication: HIV INFECTION
     Route: 048
     Dates: start: 20071113, end: 20080205
  2. NORVIR [Concomitant]
     Route: 048
     Dates: start: 20040830, end: 20080209
  3. INTELENCE [Concomitant]
     Route: 048
     Dates: start: 20071113, end: 20080209
  4. TRUVADA [Concomitant]
     Route: 048
     Dates: start: 20080121, end: 20080209
  5. TMC-114 [Concomitant]
     Route: 048
     Dates: start: 20060619, end: 20080209

REACTIONS (1)
  - HEADACHE [None]
